FAERS Safety Report 6969277-2 (Version None)
Quarter: 2010Q3

REPORT INFORMATION
  Report Type: 
  Country: None (occurrence: None)
  Receive Date: 20100902
  Receipt Date: 20100826
  Transmission Date: 20110219
  Serious: Yes (Other)
  Sender: FDA-Public Use
  Company Number: 2010SP044778

PATIENT
  Age: 70 Year
  Sex: Male

DRUGS (1)
  1. TEMODAL [Suspect]
     Indication: PRODUCT USED FOR UNKNOWN INDICATION
     Dosage: 120 MG; PO
     Route: 048
     Dates: start: 20100803

REACTIONS (1)
  - RENAL FUNCTION TEST ABNORMAL [None]
